FAERS Safety Report 9258542 (Version 3)
Quarter: 2013Q4

REPORT INFORMATION
  Report Type: Spontaneous
  Country: US (occurrence: US)
  Receive Date: 20130426
  Receipt Date: 20131029
  Transmission Date: 20140711
  Serious: Yes (Hospitalization, Disabling, Other)
  Sender: FDA-Public Use
  Company Number: US-ASTRAZENECA-2013SE27511

PATIENT
  Age: 53 Year
  Sex: Female
  Weight: 114.3 kg

DRUGS (18)
  1. NEXIUM [Suspect]
     Indication: GASTROOESOPHAGEAL REFLUX DISEASE
     Route: 048
     Dates: start: 2000, end: 2010
  2. NEXIUM [Suspect]
     Indication: ARTHRITIS
     Route: 048
     Dates: start: 2000, end: 2010
  3. NEXIUM [Suspect]
     Indication: GASTROOESOPHAGEAL REFLUX DISEASE
     Route: 048
     Dates: start: 20080529
  4. NEXIUM [Suspect]
     Indication: ARTHRITIS
     Route: 048
     Dates: start: 20080529
  5. OMEPRAZOLE [Suspect]
     Indication: GASTROOESOPHAGEAL REFLUX DISEASE
     Route: 048
     Dates: start: 2010
  6. DOXYCYCLINE [Concomitant]
     Dates: start: 20081107
  7. ROLAIDS [Concomitant]
     Dates: start: 2000
  8. HYDROCODONE [Concomitant]
     Indication: PAIN
  9. LANTUS [Concomitant]
  10. BENAZEPRIL HCTZ [Concomitant]
     Indication: HYPERTENSION
     Dosage: 20-12.5 MG
     Dates: start: 20080523
  11. ATENOLOL [Concomitant]
     Dates: start: 20081201
  12. GLIPIZIDE [Concomitant]
     Dates: start: 20090113
  13. CEPHALEXIN [Concomitant]
     Indication: INFECTION
  14. CEPHALEXIN [Concomitant]
     Indication: URINARY TRACT INFECTION
  15. METFORMIN [Concomitant]
     Indication: DIABETES MELLITUS
  16. KLOR-CON [Concomitant]
     Indication: HYPOKALAEMIC SYNDROME
  17. LOVASTATIN [Concomitant]
     Indication: BLOOD CHOLESTEROL INCREASED
  18. SIMVASTATIN [Concomitant]
     Indication: BLOOD CHOLESTEROL INCREASED

REACTIONS (19)
  - Pain in extremity [Unknown]
  - Peripheral sensory neuropathy [Unknown]
  - Breast cancer [Unknown]
  - Trigger finger [Unknown]
  - Wrist deformity [Unknown]
  - Osteoporosis [Unknown]
  - Multiple fractures [Unknown]
  - Arthritis [Unknown]
  - Rheumatoid arthritis [Unknown]
  - Bone disorder [Unknown]
  - Contusion [Unknown]
  - Joint injury [Unknown]
  - Fall [Unknown]
  - Bursitis [Unknown]
  - Ligament sprain [Unknown]
  - Arthropathy [Unknown]
  - Osteoarthritis [Unknown]
  - Anxiety [Unknown]
  - Depression [Unknown]
